FAERS Safety Report 5396310-4 (Version None)
Quarter: 2007Q3

REPORT INFORMATION
  Report Type: 
  Country: None (occurrence: None)
  Receive Date: 20070725
  Receipt Date: 20070716
  Transmission Date: 20080115
  Serious: Yes (Hospitalization)
  Sender: FDA-Public Use
  Company Number: US-ELI_LILLY_AND_COMPANY-US200707003955

PATIENT
  Age: 65 Year
  Sex: Female
  Weight: 102.04 kg

DRUGS (4)
  1. BYETTA [Suspect]
     Indication: TYPE 2 DIABETES MELLITUS
     Dosage: 10 UG, 2/D
     Route: 058
     Dates: start: 20050901
  2. GLUCOPHAGE [Concomitant]
     Indication: DIABETES MELLITUS
     Dosage: 500 MG, DAILY (1/D)
     Route: 048
  3. LYRICA [Concomitant]
     Indication: NEUROPATHY
     Route: 048
  4. LISINOPRIL [Concomitant]
     Indication: BLOOD PRESSURE INCREASED
     Route: 048

REACTIONS (2)
  - BLOOD GLUCOSE INCREASED [None]
  - KNEE ARTHROPLASTY [None]
